FAERS Safety Report 4697976-4 (Version None)
Quarter: 2005Q2

REPORT INFORMATION
  Report Type: 
  Country: None (occurrence: None)
  Receive Date: 20050622
  Receipt Date: 20050622
  Transmission Date: 20051028
  Serious: Yes (Other)
  Sender: FDA-Public Use
  Company Number: None

PATIENT
  Sex: Male
  Weight: 93.1 kg

DRUGS (4)
  1. ADRAIMYCIN [Suspect]
     Indication: HODGKIN'S DISEASE
     Dosage: 54 MG
     Dates: start: 20041228
  2. BLEOMYCIN [Suspect]
     Dosage: 22U
  3. VINBLASTINE [Suspect]
     Dosage: 13 MG
  4. DACARBAZINE [Suspect]
     Dosage: 817 MG

REACTIONS (4)
  - CHEST PAIN [None]
  - DYSPNOEA [None]
  - NAUSEA [None]
  - PULMONARY EMBOLISM [None]
